FAERS Safety Report 16831616 (Version 3)
Quarter: 2019Q4

REPORT INFORMATION
  Report Type: Spontaneous
  Country: US (occurrence: US)
  Receive Date: 20190920
  Receipt Date: 20191025
  Transmission Date: 20200122
  Serious: No
  Sender: FDA-Public Use
  Company Number: US-UNITED THERAPEUTICS-UNT-2019-015499

PATIENT
  Sex: Male
  Weight: 5.08 kg

DRUGS (4)
  1. SILDENAFIL CITRATE. [Concomitant]
     Active Substance: SILDENAFIL CITRATE
     Indication: PRODUCT USED FOR UNKNOWN INDICATION
     Dosage: UNK
     Route: 065
  2. REMODULIN [Suspect]
     Active Substance: TREPROSTINIL
     Indication: PULMONARY ARTERIAL HYPERTENSION
     Dosage: 0.0275 ?G/KG, CONTINUING
     Route: 058
     Dates: start: 20190802
  3. TRACLEER [Concomitant]
     Active Substance: BOSENTAN
     Indication: PRODUCT USED FOR UNKNOWN INDICATION
     Dosage: UNK
     Route: 065
  4. REMODULIN [Suspect]
     Active Substance: TREPROSTINIL
     Dosage: 0.04625 ?G/KG, CONTINUING
     Route: 058

REACTIONS (8)
  - Infusion site erythema [Recovered/Resolved]
  - Infusion site discharge [Recovered/Resolved]
  - Infusion site swelling [Unknown]
  - Infusion site nodule [Recovered/Resolved]
  - Infusion site pain [Recovered/Resolved]
  - Dermatitis contact [Recovered/Resolved]
  - Purulent discharge [Recovered/Resolved]
  - Infusion site infection [Unknown]

NARRATIVE: CASE EVENT DATE: 2019
